FAERS Safety Report 7006036-9 (Version None)
Quarter: 2010Q3

REPORT INFORMATION
  Report Type: 
  Country: None (occurrence: None)
  Receive Date: 20100917
  Receipt Date: 20100902
  Transmission Date: 20110219
  Serious: Yes (Other)
  Sender: FDA-Public Use
  Company Number: AUR-APL-2010-02262

PATIENT
  Age: 81 Year
  Sex: Female

DRUGS (1)
  1. SIMVASTATIN [Suspect]
     Indication: ARTERIAL STENOSIS
     Dates: start: 20100208, end: 20100608

REACTIONS (9)
  - ARTHRALGIA [None]
  - BALANCE DISORDER [None]
  - GAIT DISTURBANCE [None]
  - JOINT STIFFNESS [None]
  - LOSS OF CONTROL OF LEGS [None]
  - MUSCULOSKELETAL STIFFNESS [None]
  - OEDEMA PERIPHERAL [None]
  - PAIN IN EXTREMITY [None]
  - UNEVALUABLE EVENT [None]
